FAERS Safety Report 12020238 (Version 1)
Quarter: 2016Q1

REPORT INFORMATION
  Report Type: Spontaneous
  Country: ES (occurrence: ES)
  Receive Date: 20160206
  Receipt Date: 20160206
  Transmission Date: 20160526
  Serious: Yes (Hospitalization)
  Sender: FDA-Public Use
  Company Number: ES-ACCORD-037603

PATIENT
  Age: 71 Year
  Sex: Female

DRUGS (11)
  1. MEROPENEM. [Concomitant]
     Active Substance: MEROPENEM
  2. CICLOSPORIN [Suspect]
     Active Substance: CYCLOSPORINE
     Indication: HEART TRANSPLANT
     Dosage: ORTHOTOPIC HEART TRANSPLANTATION
  3. SILDENAFIL. [Concomitant]
     Active Substance: SILDENAFIL
  4. TIGECYCLINE. [Concomitant]
     Active Substance: TIGECYCLINE
     Indication: MYCOBACTERIUM ABSCESSUS INFECTION
     Dosage: 100 MG EVERY 12 H DURING THE FIRST 24 H, FOLLOWED BY 50 MG EVERY 12 H
  5. MYCOPHENOLIC ACID. [Suspect]
     Active Substance: MYCOPHENOLIC ACID
     Indication: HEART TRANSPLANT
  6. BASILIXIMAB [Suspect]
     Active Substance: BASILIXIMAB
     Indication: HEART TRANSPLANT
  7. ANIDULAFUNGIN [Concomitant]
     Active Substance: ANIDULAFUNGIN
  8. CLARITHROMYCIN/CLARITHROMYCIN LACTOBIONATE [Concomitant]
     Indication: MYCOBACTERIUM ABSCESSUS INFECTION
     Dosage: 500 MG EVERY 12 H
  9. LINEZOLID. [Suspect]
     Active Substance: LINEZOLID
     Indication: MYCOBACTERIUM ABSCESSUS INFECTION
     Dosage: 600 MG EVERY 12 H, INITIALLY RECEIVED AS EMPIRICAL THERAPY.
  10. PREDNISONE. [Suspect]
     Active Substance: PREDNISONE
     Indication: HEART TRANSPLANT
  11. VALGANCICLOVIR/VALGANCICLOVIR HYDROCHLORIDE [Concomitant]
     Indication: PROPHYLAXIS

REACTIONS (3)
  - Osteomyelitis [Recovered/Resolved]
  - Mycobacterium abscessus infection [Recovered/Resolved]
  - Thrombocytopenia [Recovered/Resolved]
